FAERS Safety Report 13482506 (Version 3)
Quarter: 2018Q1

REPORT INFORMATION
  Report Type: Report from Study
  Country: US (occurrence: US)
  Receive Date: 20170424
  Receipt Date: 20180115
  Transmission Date: 20180508
  Serious: No
  Sender: FDA-Public Use
  Company Number: US-AMGEN-USASL2017019117

PATIENT
  Age: 78 Year
  Sex: Male

DRUGS (2)
  1. REPATHA [Suspect]
     Active Substance: EVOLOCUMAB
     Indication: HYPERCHOLESTEROLAEMIA
     Dosage: 140 MG, Q2WK
     Route: 065
  2. REPATHA [Suspect]
     Active Substance: EVOLOCUMAB
     Indication: BLOOD CHOLESTEROL INCREASED
     Dosage: 140 MG, QMO
     Route: 065

REACTIONS (8)
  - Asthenia [Unknown]
  - Laboratory test abnormal [Unknown]
  - Cough [Unknown]
  - Influenza like illness [Unknown]
  - Blood glucose increased [Unknown]
  - Head discomfort [Unknown]
  - Blood glucose decreased [Unknown]
  - Wrong technique in product usage process [Unknown]

NARRATIVE: CASE EVENT DATE: 201701
